FAERS Safety Report 19907532 (Version 2)
Quarter: 2021Q4

REPORT INFORMATION
  Report Type: Spontaneous
  Country: EG (occurrence: EG)
  Receive Date: 20211001
  Receipt Date: 20211025
  Transmission Date: 20220304
  Serious: Yes (Life-Threatening)
  Sender: FDA-Public Use
  Company Number: EG-NOVOPROD-850288

PATIENT
  Sex: Female

DRUGS (7)
  1. INSULIN HUMAN [Suspect]
     Active Substance: INSULIN HUMAN
     Dosage: DIFFERENT DOSES ACCORDING TO THE BG LEVEL
     Route: 058
  2. INSULIN HUMAN [Suspect]
     Active Substance: INSULIN HUMAN
     Indication: Diabetes mellitus
     Dosage: 40 OR 30 IU MORNING - 30 OR 15 IU NIGHT
     Route: 058
  3. CONCOR 5 PLUS [Concomitant]
     Indication: Hypertension
     Dosage: 1 TAB DIALY OR 1/2 TAB MORNING AND 1/2 TAB NIGHT
     Route: 048
  4. DEPOVIT B12 [Concomitant]
     Indication: Vitamin supplementation
     Dosage: 1 PER WEEK
     Route: 030
  5. PROPRANOLOL [Concomitant]
     Active Substance: PROPRANOLOL HYDROCHLORIDE
     Indication: Product used for unknown indication
     Dosage: UNK
     Route: 065
  6. NITROGLYCERIN [Concomitant]
     Active Substance: NITROGLYCERIN
     Indication: Product used for unknown indication
     Dosage: UNK
     Route: 065
  7. ASPIRIN [Concomitant]
     Active Substance: ASPIRIN
     Indication: Product used for unknown indication
     Dosage: UNK
     Route: 065

REACTIONS (1)
  - Intracardiac thrombus [Recovered/Resolved]
